FAERS Safety Report 26135528 (Version 1)
Quarter: 2025Q4

REPORT INFORMATION
  Report Type: Spontaneous
  Country: US (occurrence: US)
  Receive Date: 20251209
  Receipt Date: 20251209
  Transmission Date: 20260118
  Serious: Yes (Other)
  Sender: BAYER HEALTHCARE LLC
  Company Number: US-BAYER-2025A161889

PATIENT
  Age: 72 Year
  Sex: Female

DRUGS (1)
  1. ALKA-SELTZER PLUS MAXIMUM STRENGTH COUGH, MUCUS AND CONGESTION DAY AND [Suspect]
     Active Substance: ACETAMINOPHEN\DEXTROMETHORPHAN HYDROBROMIDE\DOXYLAMINE SUCCINATE\GUAIFENESIN\PHENYLEPHRINE HYDROCHLO
     Indication: Prophylaxis
     Dosage: 2 OF THE NIGHT
     Route: 048
     Dates: start: 20251202, end: 20251202

REACTIONS (3)
  - Foreign body in throat [Recovering/Resolving]
  - Vomiting [Recovering/Resolving]
  - Product physical issue [None]

NARRATIVE: CASE EVENT DATE: 20251202
